FAERS Safety Report 17570515 (Version 1)
Quarter: 2020Q1

REPORT INFORMATION
  Report Type: Spontaneous
  Country: JP (occurrence: JP)
  Receive Date: 20200323
  Receipt Date: 20200323
  Transmission Date: 20200409
  Serious: Yes (Other)
  Sender: FDA-Public Use
  Company Number: JP-GLAXOSMITHKLINE-JP2020047274

PATIENT
  Sex: Male

DRUGS (1)
  1. ALLERMIST [Suspect]
     Active Substance: FLUTICASONE FUROATE
     Dosage: UNK
     Route: 045
     Dates: start: 201709

REACTIONS (4)
  - Aortic occlusion [Unknown]
  - Product use in unapproved indication [Unknown]
  - Drug ineffective for unapproved indication [Unknown]
  - Nasal congestion [Unknown]

NARRATIVE: CASE EVENT DATE: 201709
